FAERS Safety Report 8029951-6 (Version None)
Quarter: 2011Q4

REPORT INFORMATION
  Report Type: 
  Country: None (occurrence: None)
  Receive Date: 20111130
  Receipt Date: 20110628
  Transmission Date: 20120403
  Serious: No
  Sender: FDA-Public Use
  Company Number: US201106002929

PATIENT
  Age: 48 Year
  Sex: Female
  Weight: 90.7 kg

DRUGS (9)
  1. GABAPENTIN [Concomitant]
  2. EXENATIDE 10MCG PEN, DISPOSABLE DEVICE (EXENATIDE PEN (10MCG)) PEN,DIS [Concomitant]
  3. HORMONES AND RELATED AGENTS [Concomitant]
  4. BYETTA [Suspect]
     Indication: TYPE 2 DIABETES MELLITUS
     Dosage: 10 UG, BID, SUBCUTANEOUS
     Route: 058
     Dates: start: 20110608, end: 20110628
  5. VICODIN [Concomitant]
  6. LANTUS [Concomitant]
  7. METFORMIN HCL [Concomitant]
  8. PERCOCET [Concomitant]
  9. ACTOS [Concomitant]

REACTIONS (6)
  - BLOOD GLUCOSE DECREASED [None]
  - OFF LABEL USE [None]
  - BLOOD GLUCOSE INCREASED [None]
  - DEHYDRATION [None]
  - TREMOR [None]
  - NAUSEA [None]
